FAERS Safety Report 22336588 (Version 1)
Quarter: 2023Q2

REPORT INFORMATION
  Report Type: Other
  Country: JP (occurrence: JP)
  Receive Date: 20230518
  Receipt Date: 20230518
  Transmission Date: 20230722
  Serious: Yes (Death, Other)
  Sender: FDA-Public Use
  Company Number: JP-CHUGAI-2023017551AA

PATIENT
  Age: 62 Year
  Sex: Female

DRUGS (3)
  1. ATEZOLIZUMAB [Suspect]
     Active Substance: ATEZOLIZUMAB
     Indication: Triple negative breast cancer
     Route: 041
  2. PACLITAXEL [Suspect]
     Active Substance: PACLITAXEL
     Indication: Triple negative breast cancer
     Route: 041
  3. BETAMETHASONE [Concomitant]
     Active Substance: BETAMETHASONE
     Indication: Triple negative breast cancer
     Dosage: 4 MILLIGRAM
     Route: 048

REACTIONS (4)
  - Interstitial lung disease [Fatal]
  - Cardiovascular insufficiency [Unknown]
  - Blood beta-D-glucan increased [Unknown]
  - Tracheostomy [Unknown]
